FAERS Safety Report 9547144 (Version 2)
Quarter: 2013Q4

REPORT INFORMATION
  Report Type: Report from Study
  Country: AU (occurrence: AU)
  Receive Date: 20130924
  Receipt Date: 20131022
  Transmission Date: 20140711
  Serious: Yes (Hospitalization)
  Sender: FDA-Public Use
  Company Number: PHHY2013AU105771

PATIENT
  Age: 77 Year
  Sex: Male

DRUGS (3)
  1. ACLASTA [Suspect]
     Indication: OSTEOPOROSIS
     Dosage: 5 MG, UNK
     Route: 042
     Dates: start: 20120921
  2. BETA BLOCKING AGENTS [Concomitant]
  3. ANTIHYPERTENSIVES [Concomitant]

REACTIONS (3)
  - Acute myocardial infarction [Recovering/Resolving]
  - Troponin I increased [Unknown]
  - Angina pectoris [Unknown]
